FAERS Safety Report 8613466-8 (Version None)
Quarter: 2012Q3

REPORT INFORMATION
  Report Type: 
  Country: None (occurrence: None)
  Receive Date: 20120823
  Receipt Date: 20120809
  Transmission Date: 20120928
  Serious: Yes (Hospitalization)
  Sender: FDA-Public Use
  Company Number: DE-MYLANLABS-2012S1016425

PATIENT
  Age: 39 Year
  Sex: Female
  Weight: 85 kg

DRUGS (3)
  1. LEVOTHYROXINE SODIUM [Concomitant]
     Indication: PRODUCT USED FOR UNKNOWN INDICATION
     Dosage: 1-0-0
     Route: 048
     Dates: start: 20050101
  2. AZATHIOPRINE SODIUM [Suspect]
     Indication: PRODUCT USED FOR UNKNOWN INDICATION
     Dosage: 3X1
     Route: 048
     Dates: start: 20020101
  3. ESTRADIOL VALERATE/DIENOGEST [Concomitant]
     Indication: PRODUCT USED FOR UNKNOWN INDICATION
     Dosage: DAILY DOSE: 0.03 MG MILLGRAM(S) EVERY DAYS
     Route: 048
     Dates: start: 20000101

REACTIONS (1)
  - HEPATIC HAEMORRHAGE [None]
